FAERS Safety Report 20508846 (Version 1)
Quarter: 2022Q1

REPORT INFORMATION
  Report Type: Spontaneous
  Country: GB (occurrence: GB)
  Receive Date: 20220223
  Receipt Date: 20220223
  Transmission Date: 20220423
  Serious: Yes (Other)
  Sender: FDA-Public Use
  Company Number: None

PATIENT
  Age: 62 Year
  Sex: Female
  Weight: 54 kg

DRUGS (13)
  1. TOPAMAX [Suspect]
     Active Substance: TOPIRAMATE
     Indication: Product used for unknown indication
     Dosage: TAKE ONE AS DIRECTED ON NEUROLOGY LETTER, START
     Route: 048
     Dates: start: 20220127
  2. TOPAMAX [Suspect]
     Active Substance: TOPIRAMATE
     Route: 048
     Dates: start: 20220204, end: 202202
  3. AMLODIPINE [Concomitant]
     Active Substance: AMLODIPINE BESYLATE
     Dosage: TAKE ONE DAILY
     Dates: start: 20211115
  4. ASPIRIN [Concomitant]
     Active Substance: ASPIRIN
     Dosage: TAKE ONE DAILY
     Dates: start: 20211115
  5. ATORVASTATIN [Concomitant]
     Active Substance: ATORVASTATIN
     Dosage: TAKE ONE AT NIGHT
     Dates: start: 20211115
  6. CANDESARTAN [Concomitant]
     Active Substance: CANDESARTAN
     Dosage: TAKE ONE TWICE DAILY
     Dates: start: 20220204
  7. CARVEDILOL [Concomitant]
     Active Substance: CARVEDILOL
     Dosage: ONE TWO TIMES A DAY
     Dates: start: 20211115
  8. GABAPENTIN [Concomitant]
     Active Substance: GABAPENTIN
     Dosage: TAKE ONE THREE TIMES A DAY
     Dates: start: 20211115
  9. NITROGLYCERIN [Concomitant]
     Active Substance: NITROGLYCERIN
     Dosage: ONE PUFF AS NEEDED
     Dates: start: 20211115
  10. NITROFURANTOIN [Concomitant]
     Active Substance: NITROFURANTOIN
     Dosage: TAKE ONE TWICE DAILY
     Dates: start: 20220113, end: 20220120
  11. OMEPRAZOLE [Concomitant]
     Active Substance: OMEPRAZOLE
     Dosage: TAKE ONE DAILY
     Dates: start: 20211115
  12. ACETAMINOPHEN [Concomitant]
     Active Substance: ACETAMINOPHEN
     Dosage: TAKE ONE OR TWO TABLETS UP TO 4 TIMES/DAY
     Dates: start: 20211115
  13. PERINDOPRIL ERBUMINE [Concomitant]
     Active Substance: PERINDOPRIL ERBUMINE
     Dosage: TAKE ONE TABLET TWICE A DAY
     Dates: start: 20211115, end: 20220204

REACTIONS (3)
  - Suicidal ideation [Recovered/Resolved]
  - Self-injurious ideation [Recovered/Resolved]
  - Depressed mood [Recovered/Resolved]

NARRATIVE: CASE EVENT DATE: 20220205
